FAERS Safety Report 8819487 (Version 1)
Quarter: 2012Q4

REPORT INFORMATION
  Report Type: 
  Country: US (occurrence: US)
  Receive Date: 20120930
  Receipt Date: 20120930
  Transmission Date: 20130627
  Serious: No
  Sender: FDA-Public Use
  Company Number: US-ASTRAZENECA-2012SE72103

PATIENT
  Age: 70 Year
  Sex: Male

DRUGS (4)
  1. NEXIUM [Suspect]
     Route: 048
  2. OMEPRAZOLE [Suspect]
     Indication: DYSPEPSIA
     Route: 048
  3. CRESTOR [Suspect]
     Route: 048
  4. MAALOX [Concomitant]
     Indication: DYSPEPSIA

REACTIONS (3)
  - Dyspepsia [Unknown]
  - Drug effect incomplete [Unknown]
  - Intentional drug misuse [Unknown]
